FAERS Safety Report 8578582-8 (Version None)
Quarter: 2012Q3

REPORT INFORMATION
  Report Type: 
  Country: None (occurrence: None)
  Receive Date: 20120808
  Receipt Date: 20120629
  Transmission Date: 20120928
  Serious: Yes (Hospitalization)
  Sender: FDA-Public Use
  Company Number: US-BAYER-2012-059858

PATIENT
  Age: 32 Year
  Sex: Female
  Weight: 130.98 kg

DRUGS (14)
  1. NEXAVAR [Suspect]
     Indication: BREAST CANCER
     Dosage: 400 MG, BID
     Route: 048
     Dates: start: 20120229, end: 20120611
  2. METOPROLOL TARTRATE [Concomitant]
     Indication: HYPERTENSION
     Dosage: 25 MG, UNK
     Dates: start: 20111001
  3. KEFLEX [Concomitant]
     Indication: ANTIBIOTIC PROPHYLAXIS
     Dosage: 500 MG, UNK
     Dates: start: 20120220
  4. IXABEPILONE [Suspect]
     Indication: BREAST CANCER
     Dosage: 70 MG, UNK
     Route: 042
     Dates: start: 20120229, end: 20120522
  5. LORTAB [Concomitant]
     Indication: PAIN
     Dosage: 10 MG, UNK
     Dates: start: 20110401
  6. COMPAZINE [Concomitant]
     Indication: NAUSEA
     Dosage: 10 MG, UNK
     Dates: start: 20100901
  7. GABAPENTIN [Concomitant]
     Indication: NEURALGIA
     Dosage: 300 MG, UNK
     Dates: start: 20111101
  8. HYDROMORPHONE HYDROCHLORIDE [Concomitant]
  9. DIPHENHYDRAMINE HYDROCHLORIDE [Concomitant]
     Indication: RASH
  10. DECADRON PHOSPHATE [Concomitant]
  11. AMLODIPINE [Concomitant]
     Indication: HYPERTENSION
     Dosage: 10 MG, UNK
     Dates: start: 20111001
  12. LISINOPRIL [Concomitant]
     Indication: HYPERTENSION
     Dosage: 20 MG, UNK
     Dates: start: 20111001
  13. AMBIEN [Concomitant]
     Indication: INSOMNIA
     Dosage: 5 MG, UNK
     Dates: start: 20100801
  14. COUMADIN [Concomitant]
     Indication: DEEP VEIN THROMBOSIS
     Dosage: 5 MG DAILY
     Dates: start: 20120501

REACTIONS (7)
  - PAIN [None]
  - SWELLING FACE [None]
  - VOMITING [None]
  - NAUSEA [None]
  - JUGULAR VEIN THROMBOSIS [None]
  - ABDOMINAL PAIN [None]
  - SYNCOPE [None]
